FAERS Safety Report 20912704 (Version 1)
Quarter: 2022Q2

REPORT INFORMATION
  Report Type: Spontaneous
  Country: FR (occurrence: FR)
  Receive Date: 20220603
  Receipt Date: 20220603
  Transmission Date: 20220721
  Serious: Yes (Hospitalization)
  Sender: FDA-Public Use
  Company Number: None

PATIENT
  Age: 45 Year
  Sex: Male
  Weight: 55.4 kg

DRUGS (8)
  1. FLUOROURACIL [Suspect]
     Active Substance: FLUOROURACIL
     Dosage: 3950MG, FREQUENCY TIME 1CYCLICAL, DURATION 16DAYS
     Route: 042
     Dates: start: 20220218, end: 20220306
  2. LOPERAMIDE [Suspect]
     Active Substance: LOPERAMIDE
     Dosage: LOPERAMIDE BASE, 2MG, FREQUENCY TIME 1AS REQUIRED
     Route: 048
     Dates: start: 20220218
  3. OXALIPLATIN [Suspect]
     Active Substance: OXALIPLATIN
     Indication: Colorectal adenocarcinoma
     Dosage: 140MG, FREQUENCY TIME 1CYCLICAL, DURATION 14DAYS
     Route: 042
     Dates: start: 20220218, end: 20220304
  4. ACETAMINOPHEN [Suspect]
     Active Substance: ACETAMINOPHEN
     Dosage: 1GM, FREQUENCY TIME 1AS REQUIRED
     Route: 048
     Dates: start: 20220218
  5. LEVOLEUCOVORIN CALCIUM [Suspect]
     Active Substance: LEVOLEUCOVORIN CALCIUM
     Dosage: 330MG, FREQUENCY TIME 1CYCLICAL, DURATION 16DAYS
     Route: 042
     Dates: start: 20220218, end: 20220306
  6. METHYLPREDNISOLONE [Suspect]
     Active Substance: METHYLPREDNISOLONE
     Dosage: 40MG, FREQUENCY TIME 1CYCLICAL, DURATION 14DAYS
     Route: 042
     Dates: start: 20220218, end: 20220304
  7. ONDANSETRON [Suspect]
     Active Substance: ONDANSETRON
     Dosage: DURATION 14DAYS
     Route: 065
     Dates: start: 20220218, end: 20220304
  8. METOCLOPRAMIDE [Suspect]
     Active Substance: METOCLOPRAMIDE
     Dosage: 20MG, FREQUENCY TIME 1DAYS
     Route: 048
     Dates: start: 20220218

REACTIONS (2)
  - Rash maculo-papular [Recovering/Resolving]
  - Pyrexia [Recovered/Resolved]

NARRATIVE: CASE EVENT DATE: 20220304
